FAERS Safety Report 18071146 (Version 1)
Quarter: 2020Q3

REPORT INFORMATION
  Report Type: Spontaneous
  Country: US (occurrence: US)
  Receive Date: 20200724
  Receipt Date: 20200724
  Transmission Date: 20201103
  Serious: Yes (Disabling)
  Sender: FDA-Public Use
  Company Number: None

PATIENT
  Age: 59 Year
  Sex: Male
  Weight: 81 kg

DRUGS (8)
  1. FAMOTIDINE. [Concomitant]
     Active Substance: FAMOTIDINE
  2. STEGALTRO [Concomitant]
  3. CONCERTA [Concomitant]
     Active Substance: METHYLPHENIDATE HYDROCHLORIDE
  4. METFORMIN [Concomitant]
     Active Substance: METFORMIN HYDROCHLORIDE
  5. GABAPENTIN. [Concomitant]
     Active Substance: GABAPENTIN
  6. BUSPERONE [Concomitant]
  7. ASA [Concomitant]
     Active Substance: ASPIRIN
  8. BERSIH HAND SANITIZER FRAGRANCE FREE [Suspect]
     Active Substance: ALCOHOL
     Indication: INFECTION PROPHYLAXIS
     Dosage: ?          QUANTITY:16.9 OUNCE(S);?
     Route: 061
     Dates: start: 20200401, end: 20200724

REACTIONS (6)
  - Visual impairment [None]
  - Blindness transient [None]
  - Vision blurred [None]
  - Suspected product contamination [None]
  - Blood methanol [None]
  - Recalled product [None]

NARRATIVE: CASE EVENT DATE: 20200605
